FAERS Safety Report 9025024 (Version 1)
Quarter: 2013Q1

REPORT INFORMATION
  Report Type: Spontaneous
  Country: US (occurrence: US)
  Receive Date: 20130121
  Receipt Date: 20130121
  Transmission Date: 20140127
  Serious: Yes (Other)
  Sender: FDA-Public Use
  Company Number: US-SANOFI-AVENTIS-2013SA001464

PATIENT
  Sex: Male

DRUGS (7)
  1. LANTUS [Suspect]
     Indication: TYPE 2 DIABETES MELLITUS
     Dosage: DOSE:25 UNIT(S)
     Route: 058
  2. LANTUS SOLOSTAR [Suspect]
     Indication: TYPE 2 DIABETES MELLITUS
     Route: 058
  3. LANTUS SOLOSTAR [Suspect]
     Indication: TYPE 2 DIABETES MELLITUS
     Route: 058
  4. SOLOSTAR [Suspect]
     Indication: TYPE 2 DIABETES MELLITUS
  5. SOLOSTAR [Suspect]
     Indication: TYPE 2 DIABETES MELLITUS
  6. HUMALOG [Suspect]
     Route: 065
  7. INSULIN PEN NOS [Suspect]

REACTIONS (3)
  - Localised infection [Unknown]
  - Osteomyelitis [Unknown]
  - Visual impairment [Not Recovered/Not Resolved]
